FAERS Safety Report 12651135 (Version 1)
Quarter: 2016Q3

REPORT INFORMATION
  Report Type: Spontaneous
  Country: US (occurrence: None)
  Receive Date: 20160812
  Receipt Date: 20160812
  Transmission Date: 20161109
  Serious: Yes (Hospitalization)
  Sender: FDA-Public Use
  Company Number: None

PATIENT
  Age: 53 Year
  Sex: Male
  Weight: 66.23 kg

DRUGS (8)
  1. LORAZEPAM (ATIVAN) [Concomitant]
  2. MIRALAX [Concomitant]
     Active Substance: POLYETHYLENE GLYCOL 3350
  3. SENNOSIDES (SENNA) [Concomitant]
  4. DOCUSATE SODIUM. [Concomitant]
     Active Substance: DOCUSATE SODIUM
  5. REGORAFENIB 80MG [Suspect]
     Active Substance: REGORAFENIB
     Indication: RECTAL CANCER METASTATIC
     Dosage: 80MG DAYS 1-7 OF CYCLE 1  ORAL 047
     Route: 048
     Dates: start: 20160803, end: 20160809
  6. ONDANSETRON HCL [Concomitant]
     Active Substance: ONDANSETRON HYDROCHLORIDE
  7. CLOBETASOL [Concomitant]
     Active Substance: CLOBETASOL
  8. MIRTAZAPINE. [Concomitant]
     Active Substance: MIRTAZAPINE

REACTIONS (12)
  - Nausea [None]
  - Inflammation [None]
  - Hypophagia [None]
  - Vomiting [None]
  - Diarrhoea [None]
  - Infection [None]
  - Abdominal pain lower [None]
  - Colitis [None]
  - Metastases to liver [None]
  - Colitis ischaemic [None]
  - Haematochezia [None]
  - Pyrexia [None]

NARRATIVE: CASE EVENT DATE: 20160809
